FAERS Safety Report 16707170 (Version 1)
Quarter: 2019Q3

REPORT INFORMATION
  Report Type: Spontaneous
  Country: US (occurrence: US)
  Receive Date: 20190815
  Receipt Date: 20190815
  Transmission Date: 20191004
  Serious: No
  Sender: FDA-Public Use
  Company Number: US-SILVERGATE PHARMACEUTICALS, INC.-2019SIL00044

PATIENT
  Sex: Female

DRUGS (1)
  1. LISINOPRIL. [Suspect]
     Active Substance: LISINOPRIL

REACTIONS (4)
  - Visual impairment [Unknown]
  - Eye colour change [Unknown]
  - Dark circles under eyes [Unknown]
  - Incorrect route of product administration [Unknown]
